FAERS Safety Report 4831889-X (Version None)
Quarter: 2005Q4

REPORT INFORMATION
  Report Type: 
  Country: None (occurrence: None)
  Receive Date: 20051116
  Receipt Date: 20051104
  Transmission Date: 20060501
  Serious: Yes (Death, Hospitalization)
  Sender: FDA-Public Use
  Company Number: 2005RR-01073

PATIENT
  Age: 67 Year
  Sex: Female

DRUGS (3)
  1. LISINOPRIL [Suspect]
     Indication: HYPERTENSION
     Dosage: SEE IMAGE
  2. METFORMIN HYDROCHLORIDE [Suspect]
     Indication: DIABETES MELLITUS
     Dosage: 500 MG, TID
  3. GLYBURIDE [Concomitant]

REACTIONS (11)
  - CARDIAC ARREST [None]
  - CEREBRAL HAEMORRHAGE [None]
  - COAGULATION FACTOR DECREASED [None]
  - CONFUSIONAL STATE [None]
  - DRUG INTERACTION [None]
  - HEPATIC ENZYME INCREASED [None]
  - LACTIC ACIDOSIS [None]
  - LOSS OF CONSCIOUSNESS [None]
  - PALLOR [None]
  - RENAL FAILURE ACUTE [None]
  - VOMITING [None]
